FAERS Safety Report 25324013 (Version 1)
Quarter: 2025Q2

REPORT INFORMATION
  Report Type: Spontaneous
  Country: US (occurrence: US)
  Receive Date: 20250516
  Receipt Date: 20250516
  Transmission Date: 20250716
  Serious: No
  Sender: CSL Plasma
  Company Number: US-CSLP-51302632880-V14139750-11

PATIENT
  Age: 19 Year
  Sex: Female

DRUGS (4)
  1. ANTICOAGULANT SODIUM CITRATE [Suspect]
     Active Substance: SODIUM CITRATE
     Indication: Anticoagulant therapy
     Route: 050
     Dates: start: 20250427, end: 20250427
  2. IRON [Concomitant]
     Active Substance: IRON
     Indication: Anaemia
  3. IBUPROFEN [Concomitant]
     Active Substance: IBUPROFEN
     Indication: Pain
  4. SALINE [Concomitant]
     Active Substance: SODIUM CHLORIDE
     Indication: Product used for unknown indication
     Dates: start: 20250427, end: 20250427

REACTIONS (4)
  - Dizziness [Unknown]
  - Dysgeusia [Unknown]
  - Nausea [Unknown]
  - Pallor [Unknown]

NARRATIVE: CASE EVENT DATE: 20250427
